FAERS Safety Report 7342955-1 (Version None)
Quarter: 2011Q1

REPORT INFORMATION
  Report Type: 
  Country: None (occurrence: None)
  Receive Date: 20110310
  Receipt Date: 20110224
  Transmission Date: 20110831
  Serious: Yes (Hospitalization)
  Sender: FDA-Public Use
  Company Number: PHHY2011US15563

PATIENT
  Sex: Female

DRUGS (7)
  1. RECLAST [Suspect]
     Dosage: UNK
     Dates: start: 20101228
  2. TRAMADOL [Concomitant]
  3. CREON [Concomitant]
     Dosage: 2400 U, UNK
  4. DEXLANSOPRAZOLE [Concomitant]
  5. SYNTHROID [Concomitant]
  6. SILYBUM MARIANUM [Concomitant]
  7. ASPIRIN [Concomitant]

REACTIONS (5)
  - PAIN IN EXTREMITY [None]
  - DYSPNOEA [None]
  - BONE SWELLING [None]
  - CHEST PAIN [None]
  - PAIN [None]
